FAERS Safety Report 20937464 (Version 1)
Quarter: 2022Q2

REPORT INFORMATION
  Report Type: Spontaneous
  Country: GB (occurrence: GB)
  Receive Date: 20220609
  Receipt Date: 20220609
  Transmission Date: 20220721
  Serious: Yes (Hospitalization, Other)
  Sender: FDA-Public Use
  Company Number: GB-MYLANLABS-2021M1090286

PATIENT
  Sex: Male

DRUGS (1)
  1. CLOZARIL [Suspect]
     Active Substance: CLOZAPINE
     Indication: Schizophrenia
     Dosage: UNK
     Route: 048
     Dates: start: 20140521

REACTIONS (5)
  - Syncope [Unknown]
  - Lower respiratory tract infection [Unknown]
  - Pneumonia aspiration [Unknown]
  - Therapy interrupted [Unknown]
  - Physical deconditioning [Unknown]
